FAERS Safety Report 23137676 (Version 1)
Quarter: 2023Q4

REPORT INFORMATION
  Report Type: Spontaneous
  Country: IT (occurrence: None)
  Receive Date: 20231102
  Receipt Date: 20231102
  Transmission Date: 20240110
  Serious: Yes (Hospitalization)
  Sender: FDA-Public Use
  Company Number: 2023A243007

PATIENT
  Age: 82 Year
  Sex: Female
  Weight: 85 kg

DRUGS (8)
  1. OSIMERTINIB [Suspect]
     Active Substance: OSIMERTINIB
     Indication: Lung adenocarcinoma
     Dosage: 80 MG DAILY CONTINUOUSLY80.0MG UNKNOWN
     Route: 048
     Dates: start: 20230120, end: 20230403
  2. ALLOPURINOL [Concomitant]
     Active Substance: ALLOPURINOL
     Dosage: 150.0MG UNKNOWN
  3. FUROSEMIDE [Concomitant]
     Active Substance: FUROSEMIDE
     Dosage: 25.0MG UNKNOWN
  4. XANAX [Concomitant]
     Active Substance: ALPRAZOLAM
     Indication: Anxiety
     Dosage: 25 DROPS AT 8:00 AND 25 DROPS AT 22:0025.0GTT UNKNOWN
  5. ELIQUIS [Concomitant]
     Active Substance: APIXABAN
     Indication: Atrial fibrillation
     Dosage: 2.5MG UNKNOWN
  6. BISOPROLOL FUMARATE [Concomitant]
     Active Substance: BISOPROLOL FUMARATE
     Dosage: 2 COMPRESSE ALLE ORE 8 E UNA ALLE 201.25MG UNKNOWN
  7. LEVOTHYROXINE SODIUM [Concomitant]
     Active Substance: LEVOTHYROXINE SODIUM
     Indication: Hypothyroidism
     Dosage: 1 COMPRESSA UN^ORA PRIMA DI COLAZIONE DAL LUNED? AL SABATO75.0UG UNKNOWN
  8. LEVOTHYROXINE SODIUM [Concomitant]
     Active Substance: LEVOTHYROXINE SODIUM
     Indication: Hypothyroidism
     Dosage: UNA COMPRESSA UN^ORA PRIMA DI COLAZIONE LA DOMENICA100.0UG UNKNOWN

REACTIONS (2)
  - Ventricular dysfunction [Recovered/Resolved]
  - Cardiotoxicity [Recovered/Resolved]

NARRATIVE: CASE EVENT DATE: 20230403
